FAERS Safety Report 13947056 (Version 4)
Quarter: 2017Q4

REPORT INFORMATION
  Report Type: Spontaneous
  Country: US (occurrence: US)
  Receive Date: 20170907
  Receipt Date: 20171101
  Transmission Date: 20180320
  Serious: Yes (Other)
  Sender: FDA-Public Use
  Company Number: US-GILEAD-2017-0292064

PATIENT
  Age: 74 Year
  Sex: Female
  Weight: 58.5 kg

DRUGS (9)
  1. NOVOLOG [Concomitant]
     Active Substance: INSULIN ASPART
  2. BENAZEPRIL [Suspect]
     Active Substance: BENAZEPRIL HYDROCHLORIDE
     Indication: PRODUCT USED FOR UNKNOWN INDICATION
     Dosage: UNK
     Route: 065
  3. AMLODIPINE [Suspect]
     Active Substance: AMLODIPINE BESYLATE
     Indication: BLOOD PRESSURE MEASUREMENT
     Dosage: 10 MG, UNK
     Route: 048
     Dates: start: 20170824
  4. CADUET [Suspect]
     Active Substance: AMLODIPINE BESYLATE\ATORVASTATIN CALCIUM
     Indication: BLOOD PRESSURE MEASUREMENT
     Dosage: 1 DF, UNK
     Route: 048
     Dates: start: 20170824
  5. LANTUS [Concomitant]
     Active Substance: INSULIN GLARGINE
  6. HARVONI [Suspect]
     Active Substance: LEDIPASVIR\SOFOSBUVIR
     Indication: HEPATITIS C VIRUS TEST POSITIVE
     Dosage: 1 DF, UNK
     Route: 048
     Dates: start: 20170518, end: 20170610
  7. BISOPROLOL [Concomitant]
     Active Substance: BISOPROLOL
  8. RESTORIL [Concomitant]
     Active Substance: TEMAZEPAM
  9. LASIX [Concomitant]
     Active Substance: FUROSEMIDE

REACTIONS (3)
  - Peripheral swelling [Recovered/Resolved]
  - Pain [Recovered/Resolved]
  - Angioedema [Recovered/Resolved]

NARRATIVE: CASE EVENT DATE: 20170609
